FAERS Safety Report 14723431 (Version 2)
Quarter: 2018Q2

REPORT INFORMATION
  Report Type: Spontaneous
  Country: NO (occurrence: NO)
  Receive Date: 20180405
  Receipt Date: 20180413
  Transmission Date: 20180711
  Serious: Yes (Other)
  Sender: FDA-Public Use
  Company Number: NO-UCBSA-2018014406

PATIENT
  Age: 49 Year
  Sex: Female

DRUGS (5)
  1. METEX [Concomitant]
     Indication: PSORIATIC ARTHROPATHY
     Route: 058
     Dates: start: 2017, end: 201802
  2. CIMZIA [Suspect]
     Active Substance: CERTOLIZUMAB PEGOL
     Indication: PSORIATIC ARTHROPATHY
     Dosage: 200 MG, EV 2 WEEKS(QOW)
     Route: 058
     Dates: start: 201509
  3. IBUX [Concomitant]
     Active Substance: IBUPROFEN
     Indication: PAIN
     Dosage: 200 MG X 3 AS NEEDED
     Route: 048
  4. SOMAC [Concomitant]
     Active Substance: PANTOPRAZOLE SODIUM
     Indication: GASTROOESOPHAGEAL REFLUX DISEASE
     Dosage: 20 MG PER DAY WHEN NEEDED
     Route: 048
  5. FOLSYRE NAF [Concomitant]
     Active Substance: FOLIC ACID
     Indication: PRODUCT USED FOR UNKNOWN INDICATION
     Dosage: 1 MG EVERY DAY EXEPT ON THE MTX DAY
     Route: 048

REACTIONS (4)
  - Muscle spasms [Recovering/Resolving]
  - Myalgia [Recovering/Resolving]
  - Trismus [Recovered/Resolved]
  - Muscle contractions involuntary [Recovering/Resolving]
